FAERS Safety Report 12717231 (Version 1)
Quarter: 2016Q3

REPORT INFORMATION
  Report Type: Spontaneous
  Country: FR (occurrence: FR)
  Receive Date: 20160906
  Receipt Date: 20160906
  Transmission Date: 20161109
  Serious: Yes (Disabling)
  Sender: FDA-Public Use
  Company Number: FR-TEVA-644469ISR

PATIENT
  Sex: Male

DRUGS (2)
  1. EFFENTORA 200 MICROGRAMS [Suspect]
     Active Substance: FENTANYL CITRATE
     Indication: PRODUCT USED FOR UNKNOWN INDICATION
     Dosage: 2000 MICROGRAM DAILY; STARTED 5 YEARS AGO,
     Route: 048
     Dates: start: 2011
  2. OXYCODONE [Concomitant]
     Active Substance: OXYCODONE
     Indication: LEUKAEMIA

REACTIONS (3)
  - Tooth loss [Recovered/Resolved]
  - Blood glucose increased [Not Recovered/Not Resolved]
  - Oral surgery [Not Recovered/Not Resolved]
